FAERS Safety Report 13267402 (Version 1)
Quarter: 2017Q1

REPORT INFORMATION
  Report Type: Spontaneous
  Country: US (occurrence: US)
  Receive Date: 20170223
  Receipt Date: 20170223
  Transmission Date: 20170428
  Serious: No
  Sender: FDA-Public Use
  Company Number: None

PATIENT
  Sex: Female

DRUGS (1)
  1. NORCO [Suspect]
     Active Substance: ACETAMINOPHEN\HYDROCODONE BITARTRATE
     Indication: PAIN
     Dosage: 10-325 MG 1 TAB Q4HRS P.O.
     Route: 048
     Dates: start: 20081020

REACTIONS (3)
  - Somnolence [None]
  - Pruritus [None]
  - Product substitution issue [None]
